FAERS Safety Report 7555441-0 (Version None)
Quarter: 2011Q2

REPORT INFORMATION
  Report Type: 
  Country: None (occurrence: None)
  Receive Date: 20110617
  Receipt Date: 20110607
  Transmission Date: 20111010
  Serious: Yes (Hospitalization, Other)
  Sender: FDA-Public Use
  Company Number: US-ASTRAZENECA-2010SE45395

PATIENT
  Age: 71 Year
  Sex: Female

DRUGS (3)
  1. CRESTOR [Suspect]
     Route: 048
  2. NEXIUM [Suspect]
     Route: 048
  3. SYMBICORT [Suspect]
     Route: 055
     Dates: start: 20090101

REACTIONS (5)
  - CARDIAC OPERATION [None]
  - DYSPNOEA [None]
  - ASTHMA [None]
  - STENT PLACEMENT [None]
  - CARDIAC PACEMAKER INSERTION [None]
